FAERS Safety Report 10542309 (Version 1)
Quarter: 2014Q4

REPORT INFORMATION
  Report Type: Spontaneous
  Country: US (occurrence: None)
  Receive Date: 20141010
  Receipt Date: 20141010
  Transmission Date: 20150529
  Serious: Yes (Other)
  Sender: FDA-Public Use
  Company Number: 163-POMAL-14054016

PATIENT
  Age: 62 Year
  Sex: Female
  Weight: 54.43 kg

DRUGS (15)
  1. ZOMETA ( ZOLEDRONIC ACID) [Concomitant]
  2. DULCOLAX ( BISACODYL) [Concomitant]
  3. WARFARIN [Concomitant]
     Active Substance: WARFARIN
  4. LIDOCAINE. [Concomitant]
     Active Substance: LIDOCAINE
  5. POMALYST [Suspect]
     Active Substance: POMALIDOMIDE
     Indication: PLASMA CELL MYELOMA
     Dosage: 4 MG, 21 IN 28 D, PO
     Route: 048
     Dates: start: 20140306
  6. OXYCONTIN ( OXYCODONE HYDROCHLORIDE) [Concomitant]
  7. DEXAMETHASONE. [Concomitant]
     Active Substance: DEXAMETHASONE
  8. METOPROLOL [Concomitant]
     Active Substance: METOPROLOL
  9. MIRALAX ( MACROGOL) [Concomitant]
  10. MULTIVITAMINS [Concomitant]
     Active Substance: VITAMINS
  11. ARIMIDEX ( ANASTROZOLE) [Concomitant]
  12. CALCIUM [Concomitant]
     Active Substance: CALCIUM
  13. VELCADE ( BORTEZOMIB) [Concomitant]
  14. PROCHLORPERAZINE. [Concomitant]
     Active Substance: PROCHLORPERAZINE
  15. OXYCODONE [Concomitant]
     Active Substance: OXYCODONE

REACTIONS (5)
  - Body height decreased [None]
  - Haemoglobin decreased [None]
  - Compression fracture [None]
  - White blood cell count decreased [None]
  - Leukopenia [None]

NARRATIVE: CASE EVENT DATE: 2014
